FAERS Safety Report 6730044-6 (Version None)
Quarter: 2010Q2

REPORT INFORMATION
  Report Type: 
  Country: None (occurrence: None)
  Receive Date: 20100518
  Receipt Date: 20100513
  Transmission Date: 20101027
  Serious: Yes (Hospitalization, Other)
  Sender: FDA-Public Use
  Company Number: US-BRISTOL-MYERS SQUIBB COMPANY-15079007

PATIENT
  Age: 64 Year
  Sex: Male
  Weight: 76 kg

DRUGS (3)
  1. CISPLATIN [Suspect]
     Indication: OESOPHAGEAL ADENOCARCINOMA
     Dosage: LAST DOSE: 12APR2010
     Dates: start: 20100308, end: 20100412
  2. TAXOL [Suspect]
     Indication: OESOPHAGEAL ADENOCARCINOMA
     Dosage: LAST DOSE: 12APR2010
     Dates: start: 20100308, end: 20100412
  3. RADIATION THERAPY [Suspect]
     Indication: OESOPHAGEAL ADENOCARCINOMA
     Dosage: 1 DF =50.4GY; LAST DOSE: 14APR2010; 24 FRACTIONS
     Dates: start: 20100308, end: 20100414

REACTIONS (2)
  - GASTRIC ULCER [None]
  - LOWER GASTROINTESTINAL HAEMORRHAGE [None]
